FAERS Safety Report 4381362-0 (Version None)
Quarter: 2004Q2

REPORT INFORMATION
  Report Type: 
  Country: None (occurrence: None)
  Receive Date: 20040616
  Receipt Date: 20040610
  Transmission Date: 20050107
  Serious: Yes (Other)
  Sender: FDA-Public Use
  Company Number: 24211

PATIENT
  Age: 50 Year
  Sex: Female

DRUGS (7)
  1. METROGEL-VAGINAL [Suspect]
     Indication: VAGINAL MYCOSIS
     Dosage: (37.5 MG, 1 TOTAL), TOPICAL
     Route: 061
     Dates: start: 20040609, end: 20040609
  2. HORMONE REPLACEMENT THERAPY PATCH [Concomitant]
  3. PROZAC [Concomitant]
  4. PREVACID [Concomitant]
  5. MULTIVITAMIN [Concomitant]
  6. CALCIUM SUPPLEMENT [Concomitant]
  7. TUMS [Concomitant]

REACTIONS (9)
  - ABDOMINAL PAIN UPPER [None]
  - BRAIN DAMAGE [None]
  - CONFUSIONAL STATE [None]
  - DEPRESSION [None]
  - DYSARTHRIA [None]
  - DYSPNOEA [None]
  - HYPOAESTHESIA [None]
  - NERVE INJURY [None]
  - PALPITATIONS [None]
